FAERS Safety Report 6376933-6 (Version None)
Quarter: 2009Q3

REPORT INFORMATION
  Report Type: 
  Country: None (occurrence: None)
  Receive Date: 20090925
  Receipt Date: 20090914
  Transmission Date: 20100115
  Serious: Yes (Other)
  Sender: FDA-Public Use
  Company Number: JP-PFIZER INC-2009259703

PATIENT
  Age: 70 Year

DRUGS (5)
  1. VFEND [Suspect]
     Indication: BRONCHOPULMONARY ASPERGILLOSIS
     Route: 048
  2. MUCOSTA [Concomitant]
     Route: 048
  3. GASTER [Concomitant]
     Route: 048
  4. MEDICON [Concomitant]
     Route: 048
  5. HOKUNALIN [Concomitant]
     Route: 062

REACTIONS (2)
  - LIVER FUNCTION TEST ABNORMAL [None]
  - RHABDOMYOLYSIS [None]
